FAERS Safety Report 4530835-6 (Version None)
Quarter: 2004Q4

REPORT INFORMATION
  Report Type: 
  Country: None (occurrence: None)
  Receive Date: 20041217
  Receipt Date: 20041201
  Transmission Date: 20050328
  Serious: Yes (Hospitalization, Other)
  Sender: FDA-Public Use
  Company Number: JP-MERCK-0412USA00582

PATIENT
  Age: 76 Year
  Sex: Male
  Weight: 64 kg

DRUGS (5)
  1. INDOCIN [Suspect]
     Indication: PYREXIA
     Route: 054
     Dates: start: 20041120, end: 20041124
  2. CEFCAPENE PIVOXIL HYDROCHLORIDE [Suspect]
     Indication: ANTI-INFECTIVE THERAPY
     Route: 048
     Dates: start: 20041120, end: 20041124
  3. PONTAL [Suspect]
     Indication: PYREXIA
     Route: 048
     Dates: start: 20041120, end: 20041124
  4. LOXONIN [Suspect]
     Indication: PYREXIA
     Route: 048
     Dates: start: 20041115, end: 20041119
  5. CEFACLOR [Suspect]
     Indication: ANTI-INFECTIVE THERAPY
     Route: 048
     Dates: start: 20041115, end: 20041119

REACTIONS (9)
  - BLISTER [None]
  - CYANOSIS [None]
  - DERMATITIS EXFOLIATIVE [None]
  - DYSPHAGIA [None]
  - INJURY ASPHYXIATION [None]
  - PARKINSON'S DISEASE [None]
  - PYREXIA [None]
  - RENAL FAILURE ACUTE [None]
  - RHABDOMYOLYSIS [None]
